FAERS Safety Report 15143099 (Version 1)
Quarter: 2018Q3

REPORT INFORMATION
  Report Type: Spontaneous
  Country: US (occurrence: US)
  Receive Date: 20180713
  Receipt Date: 20180713
  Transmission Date: 20181010
  Serious: Yes (Other)
  Sender: FDA-Public Use
  Company Number: PHHY2018US036610

PATIENT
  Age: 67 Year
  Sex: Male

DRUGS (1)
  1. LOSARTAN. [Suspect]
     Active Substance: LOSARTAN
     Indication: ESSENTIAL HYPERTENSION
     Dosage: 10 MG, QD
     Route: 048

REACTIONS (8)
  - Pruritus [Unknown]
  - Skin warm [Unknown]
  - Arthropod sting [Unknown]
  - Skin oedema [Recovered/Resolved]
  - Hypersensitivity [Unknown]
  - Skin swelling [Unknown]
  - Pain of skin [Unknown]
  - Pain [Unknown]
